FAERS Safety Report 5113768-6 (Version None)
Quarter: 2006Q3

REPORT INFORMATION
  Report Type: 
  Country: None (occurrence: None)
  Receive Date: 20060921
  Receipt Date: 20060921
  Transmission Date: 20061208
  Serious: Yes (Other)
  Sender: FDA-Public Use
  Company Number: None

PATIENT

DRUGS (1)
  1. SENSORCAINE [Suspect]
     Indication: SPINAL ANAESTHESIA
     Dates: start: 20060801

REACTIONS (1)
  - ANAESTHETIC COMPLICATION [None]
